FAERS Safety Report 4951029-6 (Version None)
Quarter: 2006Q1

REPORT INFORMATION
  Report Type: 
  Country: None (occurrence: None)
  Receive Date: 20060130
  Receipt Date: 20050408
  Transmission Date: 20060701
  Serious: Yes (Hospitalization)
  Sender: FDA-Public Use
  Company Number: 141802USA

PATIENT
  Age: 62 Year
  Sex: Female

DRUGS (4)
  1. COPAXONE [Suspect]
     Indication: MULTIPLE SCLEROSIS
     Dates: start: 20040101, end: 20040905
  2. FLUOXETINE HCL [Suspect]
  3. ZOCOR [Concomitant]
  4. FOSAMAX [Concomitant]

REACTIONS (1)
  - THROMBOCYTOPENIA [None]
